FAERS Safety Report 5191525-2 (Version None)
Quarter: 2006Q4

REPORT INFORMATION
  Report Type: 
  Country: None (occurrence: None)
  Receive Date: 20061219
  Receipt Date: 20061219
  Transmission Date: 20070319
  Serious: No
  Sender: FDA-Public Use
  Company Number: None

PATIENT
  Age: 25 Year
  Sex: Female
  Weight: 47.6277 kg

DRUGS (1)
  1. ACCUTANE [Suspect]
     Indication: ACNE
     Dosage: SEE IMAGE
     Route: 048
     Dates: start: 20050101, end: 20050501

REACTIONS (4)
  - FLUSHING [None]
  - IMPAIRED HEALING [None]
  - PANIC ATTACK [None]
  - SCAR [None]
